FAERS Safety Report 18108026 (Version 1)
Quarter: 2020Q3

REPORT INFORMATION
  Report Type: Spontaneous
  Country: US (occurrence: US)
  Receive Date: 20200803
  Receipt Date: 20200803
  Transmission Date: 20201103
  Serious: No
  Sender: FDA-Public Use
  Company Number: None

PATIENT
  Age: 49 Year
  Sex: Male

DRUGS (2)
  1. ALARIS PC [Suspect]
     Active Substance: DEVICE
  2. DILAUDID [Suspect]
     Active Substance: HYDROMORPHONE HYDROCHLORIDE

REACTIONS (3)
  - Drug delivery system malfunction [None]
  - Incorrect dose administered by device [None]
  - Device failure [None]

NARRATIVE: CASE EVENT DATE: 20200729
